FAERS Safety Report 21288099 (Version 2)
Quarter: 2023Q4

REPORT INFORMATION
  Report Type: Report from Study
  Country: US (occurrence: US)
  Receive Date: 20220902
  Receipt Date: 20231127
  Transmission Date: 20240110
  Serious: No
  Sender: FDA-Public Use
  Company Number: US-ABBVIE-22K-163-4474242-00

PATIENT
  Sex: Male

DRUGS (1)
  1. IMBRUVICA [Suspect]
     Active Substance: IBRUTINIB
     Indication: Product used for unknown indication
     Route: 048
     Dates: start: 20190318

REACTIONS (11)
  - Skin disorder [Unknown]
  - Asthenia [Unknown]
  - Renal disorder [Unknown]
  - Muscle spasms [Unknown]
  - Axillary pain [Unknown]
  - Arthralgia [Unknown]
  - Arthritis [Unknown]
  - Rash [Unknown]
  - Neck pain [Unknown]
  - Back pain [Unknown]
  - Fibromyalgia [Unknown]
